FAERS Safety Report 8001534-3 (Version None)
Quarter: 2011Q4

REPORT INFORMATION
  Report Type: 
  Country: None (occurrence: None)
  Receive Date: 20111222
  Receipt Date: 20111215
  Transmission Date: 20120403
  Serious: Yes (Hospitalization, Other)
  Sender: FDA-Public Use
  Company Number: IT-PFIZER INC-2011278165

PATIENT
  Age: 77 Year
  Sex: Male

DRUGS (13)
  1. REQUIP [Suspect]
     Dosage: 4 DF, UNK
     Route: 048
     Dates: start: 20111106, end: 20111106
  2. VALSARTAN [Concomitant]
     Indication: HYPERTENSION
     Dosage: 2 DF, UNK
     Route: 048
  3. PRAMIPEXOLE DIHYDROCHLORIDE [Concomitant]
     Dosage: 2 DF, UNK
     Route: 048
  4. TRAMADOL HYDROCHLORIDE AND ACETAMINOPHEN [Concomitant]
     Dosage: 1 DF, UNK
     Route: 048
  5. UNOPROST [Concomitant]
     Dosage: 1 DF, UNK
     Route: 048
  6. POLASE [Concomitant]
     Dosage: 2 DF, DAILY
     Route: 048
  7. OMEPRAZOLE [Concomitant]
     Dosage: 2 DF, UNK
     Route: 048
  8. MADOPAR [Concomitant]
     Indication: PARKINSON'S DISEASE
     Dosage: 2 DF, UNK
     Route: 048
  9. LASIX [Concomitant]
     Dosage: 4 DF, UNK
     Route: 048
  10. AMIODARONE HCL [Concomitant]
     Dosage: 1 DF, UNK
     Route: 048
  11. LYRICA [Suspect]
     Dosage: 1 DF 75MG
     Route: 048
     Dates: start: 20111106, end: 20111106
  12. OXYCONTIN [Suspect]
     Dosage: 1 DF, 60MG
     Route: 048
     Dates: start: 20111106, end: 20111106
  13. TOLTERODINE TARTRATE [Concomitant]
     Dosage: 1 DF, UNK
     Route: 048

REACTIONS (7)
  - PLEURISY [None]
  - ANURIA [None]
  - DRUG ADMINISTRATION ERROR [None]
  - HYPOTENSION [None]
  - URINARY RETENTION [None]
  - SOPOR [None]
  - CONFUSIONAL STATE [None]
